FAERS Safety Report 6096452-4 (Version None)
Quarter: 2009Q1

REPORT INFORMATION
  Report Type: 
  Country: None (occurrence: None)
  Receive Date: 20090227
  Receipt Date: 20081230
  Transmission Date: 20090719
  Serious: No
  Sender: FDA-Public Use
  Company Number: A0761903A

PATIENT
  Age: 12 Year
  Sex: Male

DRUGS (2)
  1. LAMICTAL [Suspect]
     Dosage: 2.5MG FOUR TIMES PER DAY
     Route: 048
     Dates: start: 20081101
  2. ENALAPRIL [Concomitant]

REACTIONS (2)
  - PAIN [None]
  - RASH [None]
